FAERS Safety Report 8912675 (Version 1)
Quarter: 2012Q4

REPORT INFORMATION
  Report Type: 
  Country: IT (occurrence: IT)
  Receive Date: 20121116
  Receipt Date: 20121116
  Transmission Date: 20130627
  Serious: Yes (Other)
  Sender: FDA-Public Use
  Company Number: IT-JNJFOC-20121105320

PATIENT
  Age: 6 Year
  Sex: Female
  Weight: 20 kg

DRUGS (2)
  1. VERMOX [Suspect]
     Indication: ENTEROBIASIS
     Route: 048
     Dates: start: 20121102
  2. TEGRETOL [Concomitant]
     Indication: PETIT MAL EPILEPSY
     Route: 065

REACTIONS (1)
  - Petit mal epilepsy [Unknown]
